FAERS Safety Report 19748511 (Version 1)
Quarter: 2021Q3

REPORT INFORMATION
  Report Type: Spontaneous
  Country: US (occurrence: US)
  Receive Date: 20210823
  Receipt Date: 20210823
  Transmission Date: 20211014
  Serious: Yes (Hospitalization)
  Sender: FDA-Public Use
  Company Number: None

PATIENT
  Age: 63 Year
  Sex: Female

DRUGS (19)
  1. VITAMIN D [Concomitant]
     Active Substance: VITAMIN D NOS
     Dates: start: 20210701
  2. XALKORI [Suspect]
     Active Substance: CRIZOTINIB
     Indication: LYMPHOMA
     Route: 048
     Dates: start: 20210702
  3. TURMERIC [Concomitant]
     Active Substance: HERBALS\TURMERIC
     Dates: start: 20210819
  4. LEVOTHYROXIN [Concomitant]
     Active Substance: LEVOTHYROXINE
     Dates: start: 20210421
  5. POT CHLORIDE [Concomitant]
     Active Substance: POTASSIUM CHLORIDE
     Dates: start: 20210525
  6. STIMULANT [Concomitant]
     Active Substance: UNSPECIFIED INGREDIENT
     Dates: start: 20210819
  7. BACITR ZINC [Concomitant]
     Dates: start: 20190819
  8. ONDANSETRON [Concomitant]
     Active Substance: ONDANSETRON
     Dates: start: 20210819
  9. ALENDRONATE [Concomitant]
     Active Substance: ALENDRONATE SODIUM
     Dates: start: 20210421
  10. DEXAMETHASON [Concomitant]
     Active Substance: DEXAMETHASONE
     Dates: start: 20210819
  11. OXYCODONE [Concomitant]
     Active Substance: OXYCODONE
     Dates: start: 20210819
  12. ALPRAZOLAM. [Concomitant]
     Active Substance: ALPRAZOLAM
     Dates: start: 20210309
  13. LEVETIRACETA [Concomitant]
     Active Substance: LEVETIRACETAM
     Dates: start: 20210819
  14. LEVETIRACETA [Concomitant]
     Active Substance: LEVETIRACETAM
     Dates: start: 20210819
  15. ACETAMINOPOHE [Concomitant]
     Dates: start: 20210819
  16. FAMOTIDINE. [Concomitant]
     Active Substance: FAMOTIDINE
     Dates: start: 20210525
  17. DULERA [Concomitant]
     Active Substance: FORMOTEROL FUMARATE DIHYDRATE\MOMETASONE FUROATE
     Dates: start: 20210422
  18. ATROVASTATIN [Concomitant]
     Active Substance: ATORVASTATIN CALCIUM
     Dates: start: 20210421
  19. FUROSEMIDE. [Concomitant]
     Active Substance: FUROSEMIDE
     Dates: start: 20210525

REACTIONS (1)
  - Headache [None]

NARRATIVE: CASE EVENT DATE: 20210820
